FAERS Safety Report 9888624 (Version 2)
Quarter: 2014Q1

REPORT INFORMATION
  Report Type: Report from Study
  Country: DE (occurrence: DE)
  Receive Date: 20140211
  Receipt Date: 20140321
  Transmission Date: 20141002
  Serious: Yes (Hospitalization)
  Sender: FDA-Public Use
  Company Number: DE-UCBSA-111562

PATIENT
  Sex: Female

DRUGS (2)
  1. CIMZIA [Suspect]
     Indication: RHEUMATOID ARTHRITIS
     Dates: start: 201101, end: 20131009
  2. MTX [Concomitant]
     Dates: start: 200909, end: 201306

REACTIONS (1)
  - Colitis ulcerative [Not Recovered/Not Resolved]
